FAERS Safety Report 6755585-7 (Version None)
Quarter: 2010Q2

REPORT INFORMATION
  Report Type: 
  Country: None (occurrence: None)
  Receive Date: 20100604
  Receipt Date: 20100524
  Transmission Date: 20101027
  Serious: Yes (Disabling)
  Sender: FDA-Public Use
  Company Number: PHHY2010US28629

PATIENT
  Sex: Female
  Weight: 67 kg

DRUGS (4)
  1. GLEEVEC [Suspect]
     Indication: CHRONIC MYELOID LEUKAEMIA
     Dosage: 400 MG, QD
     Route: 048
     Dates: start: 20070323
  2. FERROUS SULFATE TAB [Concomitant]
     Indication: ANAEMIA
     Dosage: 325 MG, QD
     Dates: start: 20100323
  3. YAZ BCP [Concomitant]
     Indication: CONTRACEPTION
     Dosage: UNK; QD
     Route: 048
     Dates: start: 20100323
  4. IBUPROFEN [Concomitant]
     Indication: PAIN
     Dosage: PRN

REACTIONS (4)
  - ALDOLASE INCREASED [None]
  - BLOOD CREATINE PHOSPHOKINASE INCREASED [None]
  - MUSCLE SPASMS [None]
  - MYALGIA [None]
